FAERS Safety Report 16128489 (Version 2)
Quarter: 2021Q3

REPORT INFORMATION
  Report Type: Spontaneous
  Country: US (occurrence: US)
  Receive Date: 20190328
  Receipt Date: 20210914
  Transmission Date: 20211014
  Serious: Yes (Other)
  Sender: FDA-Public Use
  Company Number: US-ASTRAZENECA-2019SE45083

PATIENT
  Age: 61 Year
  Sex: Female

DRUGS (1)
  1. DURVALUMAB. [Suspect]
     Active Substance: DURVALUMAB
     Indication: NON-SMALL CELL LUNG CANCER STAGE IIIA
     Dosage: 1 DOSE
     Route: 042
     Dates: start: 20180301

REACTIONS (3)
  - Metastases to central nervous system [Recovered/Resolved]
  - Metastases to adrenals [Recovered/Resolved]
  - Tumour hyperprogression [Recovered/Resolved]

NARRATIVE: CASE EVENT DATE: 2018
